FAERS Safety Report 13032810 (Version 35)
Quarter: 2019Q3

REPORT INFORMATION
  Report Type: Spontaneous
  Country: US (occurrence: US)
  Receive Date: 20161215
  Receipt Date: 20190711
  Transmission Date: 20191004
  Serious: Yes (Hospitalization, Other)
  Sender: FDA-Public Use
  Company Number: US-ACTELION-A-US2016-147010

PATIENT
  Age: 59 Year
  Sex: Female
  Weight: 65.76 kg

DRUGS (18)
  1. XARELTO [Concomitant]
     Active Substance: RIVAROXABAN
  2. PANTOPRAZOLE [Concomitant]
     Active Substance: PANTOPRAZOLE
  3. AZITHROMYCIN ANHYDROUS. [Concomitant]
     Active Substance: AZITHROMYCIN ANHYDROUS
  4. TYVASO [Suspect]
     Active Substance: TREPROSTINIL
     Indication: PRODUCT USED FOR UNKNOWN INDICATION
     Dosage: 8 BREATHS, QID
     Route: 065
  5. SYMBICORT [Concomitant]
     Active Substance: BUDESONIDE\FORMOTEROL FUMARATE DIHYDRATE
     Dosage: 80 MCG - 4.5 MCG/ACTUATION INHALER, 2 PUFFS
  6. TYVASO [Suspect]
     Active Substance: TREPROSTINIL
     Dosage: 5 BREATHS 4 TIMESA DAY
     Route: 065
  7. TYVASO [Suspect]
     Active Substance: TREPROSTINIL
     Dosage: 9 BREATHS, 4 TIMES DAILYUNK
     Route: 055
  8. REVATIO [Concomitant]
     Active Substance: SILDENAFIL CITRATE
  9. OXYGEN. [Concomitant]
     Active Substance: OXYGEN
  10. VENTOLIN HFA [Concomitant]
     Active Substance: ALBUTEROL SULFATE
     Dosage: 90 MCG, 2 PUFFS BY INHALATION Q 4 - 5 HRS AS NEEDED
     Route: 055
  11. NEXIUM [Concomitant]
     Active Substance: ESOMEPRAZOLE MAGNESIUM
  12. TRACLEER [Suspect]
     Active Substance: BOSENTAN
     Dosage: 125 MG, BID
     Route: 048
  13. SYMBICORT [Concomitant]
     Active Substance: BUDESONIDE\FORMOTEROL FUMARATE DIHYDRATE
     Dosage: 2 PUFF, BID
  14. CLARITHROMYCIN. [Concomitant]
     Active Substance: CLARITHROMYCIN
  15. PREDNISONE. [Concomitant]
     Active Substance: PREDNISONE
     Dosage: 12 UNK, UNK
  16. TRACLEER [Suspect]
     Active Substance: BOSENTAN
     Indication: PULMONARY ARTERIAL HYPERTENSION
     Dosage: 125 MG, BID
     Route: 048
     Dates: start: 20160719
  17. TRACLEER [Suspect]
     Active Substance: BOSENTAN
     Dosage: 125 MG, BID
     Route: 048
  18. PREDNISONE. [Concomitant]
     Active Substance: PREDNISONE
     Dosage: 10 MG, QD
     Route: 048

REACTIONS (67)
  - Platelet count increased [Unknown]
  - Chronic obstructive pulmonary disease [Unknown]
  - Insomnia [Unknown]
  - Productive cough [Unknown]
  - Sputum discoloured [Unknown]
  - Malaise [Unknown]
  - Pain [Unknown]
  - Cough [Unknown]
  - Swelling [Unknown]
  - Stomatitis [Unknown]
  - Dental caries [Unknown]
  - Blood potassium decreased [Unknown]
  - Gastrooesophageal reflux disease [Unknown]
  - Fatigue [Unknown]
  - Heart rate increased [Unknown]
  - Abdominal discomfort [Unknown]
  - Seasonal allergy [Unknown]
  - Hypotension [Unknown]
  - Cataract [Unknown]
  - Eye operation [Unknown]
  - Unevaluable event [Unknown]
  - Transfusion [Unknown]
  - Biopsy bone marrow [Unknown]
  - Solar lentigo [Unknown]
  - Eating disorder [Unknown]
  - Dyspnoea exertional [Unknown]
  - Chest discomfort [Unknown]
  - Pericardial effusion [Unknown]
  - Rash [Unknown]
  - Herpes zoster [Unknown]
  - Haemorrhage [Unknown]
  - Condition aggravated [Unknown]
  - Throat irritation [Unknown]
  - Sinusitis [Unknown]
  - Pruritus [Unknown]
  - Dyspnoea at rest [Unknown]
  - Abdominal distension [Unknown]
  - Dizziness [Unknown]
  - Feeling abnormal [Unknown]
  - Skin disorder [Unknown]
  - Abdominal pain upper [Unknown]
  - Tooth extraction [Unknown]
  - Constipation [Unknown]
  - Vocal cord disorder [Unknown]
  - Oxygen saturation decreased [Unknown]
  - Hypertension [Unknown]
  - Chest pain [Unknown]
  - Flatulence [Unknown]
  - Gastrointestinal disorder [Unknown]
  - Inflammation [Unknown]
  - Immune thrombocytopenic purpura [Unknown]
  - Platelet count decreased [Recovering/Resolving]
  - Anxiety [Unknown]
  - Wheezing [Unknown]
  - Pulmonary thrombosis [Unknown]
  - Headache [Unknown]
  - Visual impairment [Unknown]
  - Pulmonary hypertension [Unknown]
  - Sinus congestion [Unknown]
  - Arthralgia [Unknown]
  - Contusion [Unknown]
  - Pulmonary embolism [Unknown]
  - Dyspnoea [Unknown]
  - Exposure to mould [Unknown]
  - Cataract operation [Unknown]
  - Respiratory disorder [Unknown]
  - Diarrhoea [Unknown]

NARRATIVE: CASE EVENT DATE: 2016
